FAERS Safety Report 12642094 (Version 1)
Quarter: 2016Q3

REPORT INFORMATION
  Report Type: Report from Study
  Country: DE (occurrence: DE)
  Receive Date: 20160810
  Receipt Date: 20160810
  Transmission Date: 20161109
  Serious: Yes (Hospitalization)
  Sender: FDA-Public Use
  Company Number: DE-ABBVIE-16K-062-1568136-00

PATIENT
  Age: 32 Year
  Sex: Male

DRUGS (1)
  1. HUMIRA [Suspect]
     Active Substance: ADALIMUMAB
     Indication: CROHN^S DISEASE
     Route: 058
     Dates: start: 20151210, end: 201603

REACTIONS (7)
  - Chills [Not Recovered/Not Resolved]
  - Hyperhidrosis [Not Recovered/Not Resolved]
  - Body temperature increased [Not Recovered/Not Resolved]
  - Abdominal adhesions [Recovering/Resolving]
  - Inflammatory marker increased [Not Recovered/Not Resolved]
  - Abdominal pain [Recovering/Resolving]
  - Enteritis [Unknown]

NARRATIVE: CASE EVENT DATE: 20151210
